FAERS Safety Report 6469963-7 (Version None)
Quarter: 2009Q4

REPORT INFORMATION
  Report Type: 
  Country: None (occurrence: None)
  Receive Date: 20091203
  Receipt Date: 20080305
  Transmission Date: 20100525
  Serious: Yes (Other)
  Sender: FDA-Public Use
  Company Number: DE-ELI_LILLY_AND_COMPANY-DE200801000002

PATIENT
  Sex: Female
  Weight: 69 kg

DRUGS (10)
  1. GEMZAR [Suspect]
     Indication: PANCREATIC CARCINOMA
     Dosage: 1700 MG, WEEKLY (1/W)
     Route: 042
     Dates: start: 20070226, end: 20070611
  2. GEMZAR [Suspect]
     Dosage: 1700 MG, WEEKLY (1/W)
     Route: 042
     Dates: start: 20070807, end: 20071009
  3. GEMZAR [Suspect]
     Dosage: 1500 MG, WEEKLY (1/W)
     Route: 042
     Dates: start: 20071016, end: 20071030
  4. LEVOTHYROXINE SODIUM [Concomitant]
     Dosage: UNK, UNKNOWN
     Route: 065
  5. DURAGESIC-100 [Concomitant]
     Dosage: UNK, UNKNOWN
     Route: 065
     Dates: start: 20070719
  6. ISOPTIN [Concomitant]
     Dosage: UNK, UNKNOWN
     Route: 065
     Dates: start: 20070718
  7. BIOTIN [Concomitant]
     Dosage: UNK, UNKNOWN
     Route: 065
  8. DELIX [Concomitant]
     Dosage: UNK, UNKNOWN
     Route: 065
  9. AQUAPHOR [Concomitant]
     Dosage: UNK, UNKNOWN
     Route: 065
  10. KEVATRIL [Concomitant]
     Indication: PROPHYLAXIS OF NAUSEA AND VOMITING
     Dosage: 1 MG, UNK
     Route: 042

REACTIONS (3)
  - BLOOD CREATININE INCREASED [None]
  - OEDEMA PERIPHERAL [None]
  - PLEURAL EFFUSION [None]
